FAERS Safety Report 16465359 (Version 5)
Quarter: 2019Q3

REPORT INFORMATION
  Report Type: Report from Study
  Country: US (occurrence: US)
  Receive Date: 20190621
  Receipt Date: 20190903
  Transmission Date: 20191004
  Serious: Yes (Death, Hospitalization, Other)
  Sender: FDA-Public Use
  Company Number: US-ACTELION-A-US2019-191900

PATIENT
  Age: 78 Year
  Sex: Male
  Weight: 79.82 kg

DRUGS (4)
  1. JAKAFI [Concomitant]
     Active Substance: RUXOLITINIB
  2. UPTRAVI [Suspect]
     Active Substance: SELEXIPAG
     Indication: PULMONARY ARTERIAL HYPERTENSION
     Dosage: 1200 MCG, BID
     Route: 048
  3. ELIQUIS [Concomitant]
     Active Substance: APIXABAN
  4. FELODIPINE. [Concomitant]
     Active Substance: FELODIPINE

REACTIONS (14)
  - Cancer surgery [Unknown]
  - Sepsis [Fatal]
  - Headache [Recovering/Resolving]
  - Back pain [Unknown]
  - Transfusion [Unknown]
  - Myelofibrosis [Unknown]
  - Diarrhoea [Unknown]
  - Chronic obstructive pulmonary disease [Unknown]
  - Herpes zoster [Unknown]
  - Skin cancer [Unknown]
  - International normalised ratio increased [Unknown]
  - Jaundice [Unknown]
  - Chest pain [Unknown]
  - Haemoglobin decreased [Unknown]

NARRATIVE: CASE EVENT DATE: 20190606
